FAERS Safety Report 16210590 (Version 1)
Quarter: 2019Q2

REPORT INFORMATION
  Report Type: Spontaneous
  Country: US (occurrence: US)
  Receive Date: 20190418
  Receipt Date: 20190418
  Transmission Date: 20190711
  Serious: Yes (Hospitalization, Other)
  Sender: FDA-Public Use
  Company Number: US-AEGERION PHARMACEUTICAL, INC-AEGR004215

PATIENT
  Sex: Female
  Weight: 28.07 kg

DRUGS (2)
  1. MYALEPT [Suspect]
     Active Substance: METRELEPTIN
     Indication: LIPODYSTROPHY ACQUIRED
     Dosage: 1.4 MG (0.28 ML), BID
     Route: 058
  2. MYALEPT [Suspect]
     Active Substance: METRELEPTIN
     Dosage: 1.6 MG, BID

REACTIONS (4)
  - Weight increased [Unknown]
  - Condition aggravated [Unknown]
  - Blood glucose increased [Unknown]
  - Autoimmune hepatitis [Unknown]
